FAERS Safety Report 21337448 (Version 1)
Quarter: 2022Q3

REPORT INFORMATION
  Report Type: Spontaneous
  Country: US (occurrence: None)
  Receive Date: 20220914
  Receipt Date: 20220914
  Transmission Date: 20221026
  Serious: No
  Sender: FDA-Public Use
  Company Number: None

PATIENT
  Age: 30 Year
  Sex: Female
  Weight: 72 kg

DRUGS (9)
  1. DEXTROAMPHETAMINE [Suspect]
     Active Substance: DEXTROAMPHETAMINE
     Indication: Attention deficit hyperactivity disorder
     Dosage: FREQUENCY : DAILY;?
     Route: 048
     Dates: start: 20220812, end: 20220911
  2. D-Amphetamine ER [Concomitant]
  3. BUPROPION [Concomitant]
     Active Substance: BUPROPION
  4. ESCITALOPRAM [Concomitant]
     Active Substance: ESCITALOPRAM OXALATE
  5. CLONIDINE [Concomitant]
     Active Substance: CLONIDINE
  6. TYLENOL [Concomitant]
     Active Substance: ACETAMINOPHEN
  7. ADVIL [Concomitant]
     Active Substance: IBUPROFEN
  8. MELATONIN [Concomitant]
     Active Substance: MELATONIN
  9. BENADRYL [Concomitant]
     Active Substance: DIPHENHYDRAMINE HYDROCHLORIDE

REACTIONS (6)
  - Product substitution issue [None]
  - Therapeutic product effect decreased [None]
  - Withdrawal syndrome [None]
  - Fatigue [None]
  - Symptom recurrence [None]
  - Product availability issue [None]

NARRATIVE: CASE EVENT DATE: 20220812
